FAERS Safety Report 7532379-6 (Version None)
Quarter: 2011Q2

REPORT INFORMATION
  Report Type: 
  Country: None (occurrence: None)
  Receive Date: 20110608
  Receipt Date: 20110603
  Transmission Date: 20111010
  Serious: Yes (Disabling, Other)
  Sender: FDA-Public Use
  Company Number: US-PFIZER INC-2010005513

PATIENT
  Sex: Female

DRUGS (3)
  1. CHANTIX [Suspect]
     Indication: SMOKING CESSATION THERAPY
     Dosage: 1 MG, UNK
     Dates: start: 20081208
  2. KLONOPIN [Concomitant]
     Indication: ANXIETY
     Dosage: UNK
     Dates: start: 20050101
  3. CYMBALTA [Concomitant]
     Indication: DEPRESSION
     Dosage: UNK
     Dates: start: 20070101

REACTIONS (7)
  - AMNESIA [None]
  - MENTAL DISORDER [None]
  - SUICIDE ATTEMPT [None]
  - AGGRESSION [None]
  - DEPRESSION [None]
  - IMPAIRED DRIVING ABILITY [None]
  - ABNORMAL BEHAVIOUR [None]
